FAERS Safety Report 19125454 (Version 1)
Quarter: 2021Q2

REPORT INFORMATION
  Report Type: Report from Study
  Country: CA (occurrence: CA)
  Receive Date: 20210412
  Receipt Date: 20210412
  Transmission Date: 20210717
  Serious: Yes (Hospitalization, Other)
  Sender: FDA-Public Use
  Company Number: CA-BAUSCH-BL-2021-011940

PATIENT
  Age: 69 Year
  Sex: Female

DRUGS (10)
  1. FORMOTEROL/MOMETASONE [Suspect]
     Active Substance: FORMOTEROL\MOMETASONE
     Indication: PRODUCT USED FOR UNKNOWN INDICATION
  2. NUCALA [Suspect]
     Active Substance: MEPOLIZUMAB
     Indication: ASTHMA
     Route: 042
  3. ATROVENT [Suspect]
     Active Substance: IPRATROPIUM BROMIDE
     Indication: PRODUCT USED FOR UNKNOWN INDICATION
     Route: 065
  4. ALVESCO [Suspect]
     Active Substance: CICLESONIDE
     Indication: PRODUCT USED FOR UNKNOWN INDICATION
     Dosage: AEROSOL, METERED DOSE
  5. TIOTROPIUM BROMIDE [Suspect]
     Active Substance: TIOTROPIUM BROMIDE
     Indication: PRODUCT USED FOR UNKNOWN INDICATION
     Route: 065
  6. BUDESONIDE/FORMOTEROL FUMARATE [Suspect]
     Active Substance: BUDESONIDE\FORMOTEROL FUMARATE
     Indication: PRODUCT USED FOR UNKNOWN INDICATION
  7. SINGULAIR [Suspect]
     Active Substance: MONTELUKAST SODIUM
     Indication: PRODUCT USED FOR UNKNOWN INDICATION
  8. FLOVENT DISKUS [Suspect]
     Active Substance: FLUTICASONE PROPIONATE
     Indication: PRODUCT USED FOR UNKNOWN INDICATION
     Route: 065
  9. SALBUTAMOL SULFATE [Suspect]
     Active Substance: ALBUTEROL SULFATE
     Indication: PRODUCT USED FOR UNKNOWN INDICATION
     Route: 065
  10. BUDESONIDE/FORMOTEROL FUMARATE [Suspect]
     Active Substance: BUDESONIDE\FORMOTEROL FUMARATE

REACTIONS (7)
  - Blood count abnormal [Recovered/Resolved]
  - Asthma [Recovered/Resolved]
  - Dyspnoea [Recovered/Resolved]
  - Sleep disorder due to a general medical condition [Recovered/Resolved]
  - Asthmatic crisis [Recovered/Resolved]
  - Loss of personal independence in daily activities [Recovered/Resolved]
  - Wheezing [Recovered/Resolved]
